FAERS Safety Report 21009517 (Version 3)
Quarter: 2023Q4

REPORT INFORMATION
  Report Type: Report from Study
  Country: US (occurrence: US)
  Receive Date: 20220627
  Receipt Date: 20231229
  Transmission Date: 20240109
  Serious: Yes (Hospitalization, Other)
  Sender: FDA-Public Use
  Company Number: US-GSKCCFUS-Case-01414406_AE-81407

PATIENT

DRUGS (4)
  1. MEPOLIZUMAB [Suspect]
     Active Substance: MEPOLIZUMAB
     Indication: Lung disorder
     Dosage: UNK
  2. MEPOLIZUMAB [Suspect]
     Active Substance: MEPOLIZUMAB
     Indication: Asthma
  3. MEPOLIZUMAB [Suspect]
     Active Substance: MEPOLIZUMAB
     Indication: Bronchitis
  4. CEFDINIR [Suspect]
     Active Substance: CEFDINIR
     Indication: Product used for unknown indication
     Dosage: 300 MG, BID
     Route: 048

REACTIONS (30)
  - Fall [Unknown]
  - Arthropathy [Unknown]
  - Arthralgia [Recovering/Resolving]
  - Gait inability [Recovering/Resolving]
  - Bursitis [Unknown]
  - Condition aggravated [Unknown]
  - Muscle rupture [Unknown]
  - Musculoskeletal stiffness [Unknown]
  - Malaise [Unknown]
  - Decreased appetite [Unknown]
  - Oedema peripheral [Unknown]
  - Productive cough [Unknown]
  - Exposure to SARS-CoV-2 [Unknown]
  - SARS-CoV-2 test positive [Unknown]
  - COVID-19 [Unknown]
  - Neutrophilia [Unknown]
  - Monocytosis [Unknown]
  - Computerised tomogram abnormal [Unknown]
  - Dysuria [Recovered/Resolved]
  - Musculoskeletal disorder [Unknown]
  - Asthenia [Unknown]
  - Contusion [Unknown]
  - White blood cell count increased [Unknown]
  - Osteoarthritis [Unknown]
  - Hypophagia [Unknown]
  - Weight decreased [Unknown]
  - Muscle atrophy [Unknown]
  - Off label use [Unknown]
  - Product dose omission issue [Unknown]
  - Product complaint [Unknown]

NARRATIVE: CASE EVENT DATE: 20220518
